FAERS Safety Report 7707433-6 (Version None)
Quarter: 2011Q3

REPORT INFORMATION
  Report Type: 
  Country: None (occurrence: None)
  Receive Date: 20110824
  Receipt Date: 20110817
  Transmission Date: 20111222
  Serious: Yes (Other)
  Sender: FDA-Public Use
  Company Number: CA-PFIZER INC-2011189664

PATIENT
  Age: 84 Year
  Sex: Male

DRUGS (5)
  1. BACLOFEN [Concomitant]
     Indication: MUSCLE DISORDER
     Dosage: UNK
  2. XALATAN [Suspect]
     Indication: GLAUCOMA
     Dosage: ONE DROP IN BOTH EYES ONCE A DAY AT BEDTIME
     Route: 047
  3. RAMIPRIL [Concomitant]
     Indication: BLOOD PRESSURE ABNORMAL
     Dosage: UNK
  4. TOBRAMYCIN [Concomitant]
     Dosage: UNK
  5. DOXYCYCLINE [Concomitant]
     Dosage: UNK

REACTIONS (2)
  - CATARACT OPERATION [None]
  - CORNEAL TRANSPLANT [None]
